FAERS Safety Report 13367316 (Version 1)
Quarter: 2017Q1

REPORT INFORMATION
  Report Type: Spontaneous
  Country: US (occurrence: US)
  Receive Date: 20170324
  Receipt Date: 20170324
  Transmission Date: 20170429
  Serious: Yes (Life-Threatening, Hospitalization)
  Sender: FDA-Public Use
  Company Number: US-LPDUSPRD-20170319

PATIENT
  Age: 12 Year
  Sex: Male
  Weight: 31.4 kg

DRUGS (35)
  1. LORAZEPAM. [Concomitant]
     Active Substance: LORAZEPAM
     Dosage: UNKNOWN
     Route: 065
     Dates: start: 20170107, end: 20170109
  2. ACYCLOVIR. [Concomitant]
     Active Substance: ACYCLOVIR
     Dosage: DOSE UNKNOWN
     Route: 065
     Dates: start: 20170111
  3. DIPHENHYDRAMINE. [Concomitant]
     Active Substance: DIPHENHYDRAMINE
     Dosage: UNKNOWN
     Route: 065
     Dates: start: 20170109, end: 20170111
  4. PARACETAMOL [Concomitant]
     Active Substance: ACETAMINOPHEN
     Dosage: UNKNOWN
     Route: 065
     Dates: start: 20170113, end: 20170116
  5. SULFAMETHOXAZOLE AND TRIMETHOPRIM [Concomitant]
     Active Substance: SULFAMETHOXAZOLE\TRIMETHOPRIM
     Dosage: UNKNOWN
     Route: 065
     Dates: start: 20170104, end: 20170110
  6. BUSULFAN INJECTION (0517-0920-01) [Suspect]
     Active Substance: BUSULFAN
     Dosage: 30 MG
     Route: 042
     Dates: start: 20170104, end: 20170104
  7. CETIRIZINE [Concomitant]
     Active Substance: CETIRIZINE HYDROCHLORIDE
     Dosage: UNKNOWN
     Route: 065
     Dates: start: 20170104
  8. HEPARIN SODIUM. [Concomitant]
     Active Substance: HEPARIN SODIUM
     Dosage: UNKNOWN
     Route: 065
     Dates: start: 20170108, end: 20170108
  9. PROMETHAZINE [Concomitant]
     Active Substance: PROMETHAZINE\PROMETHAZINE HYDROCHLORIDE
     Dosage: UNKNOWN
     Route: 065
     Dates: start: 20170111
  10. CEFEPIME [Concomitant]
     Active Substance: CEFEPIME HYDROCHLORIDE
     Dosage: UNKNOWN
     Route: 065
     Dates: start: 20170117
  11. LEVOFLOXACIN. [Concomitant]
     Active Substance: LEVOFLOXACIN
     Dosage: UNKNOWN
     Route: 065
     Dates: start: 20170104
  12. GEMTUZUMAB OZOGAMICIN [Suspect]
     Active Substance: GEMTUZUMAB OZOGAMICIN
     Dosage: REGIMEN 2
     Route: 042
     Dates: start: 20161123, end: 20161222
  13. SPIRONOLACTONE. [Concomitant]
     Active Substance: SPIRONOLACTONE
     Dosage: UNKNOWN
     Route: 065
     Dates: start: 20170115
  14. ONDANSETRON [Concomitant]
     Active Substance: ONDANSETRON
     Dosage: UNKNOWN
     Route: 065
     Dates: start: 20170104, end: 20170110
  15. MACROGOL 3350 [Concomitant]
     Active Substance: POLYETHYLENE GLYCOL 3350
     Dosage: UNKNOWN
     Route: 065
     Dates: start: 20170105, end: 20170109
  16. HYOSCINE [Concomitant]
     Active Substance: SCOPOLAMINE
     Dosage: UNKNOWN
     Route: 065
     Dates: start: 20170107, end: 20170109
  17. DEXAMETHASONE. [Concomitant]
     Active Substance: DEXAMETHASONE
     Dosage: UNKNOWN
     Route: 065
     Dates: start: 20170109, end: 20170112
  18. VANCOMYCIN [Concomitant]
     Active Substance: VANCOMYCIN
     Dosage: UNKNOWN
     Route: 065
     Dates: start: 20170117
  19. POTASSIUM CHLORIDE. [Concomitant]
     Active Substance: POTASSIUM CHLORIDE
     Dosage: UNKNOWN
     Route: 065
     Dates: start: 20170111, end: 20170113
  20. FUROSEMIDE. [Concomitant]
     Active Substance: FUROSEMIDE
     Dosage: UNKNOWN
     Route: 065
     Dates: start: 20170113
  21. DOPAMINE [Concomitant]
     Active Substance: DOPAMINE\DOPAMINE HYDROCHLORIDE
     Dosage: 2.0472 MG
     Route: 065
     Dates: start: 20170118, end: 20170118
  22. MICAFUNGIN [Concomitant]
     Active Substance: MICAFUNGIN
     Dosage: UNKNOWN
     Route: 065
     Dates: start: 20170104
  23. PANTOPRAZOLE [Concomitant]
     Active Substance: PANTOPRAZOLE SODIUM
     Dosage: UNKNOWN
     Route: 065
     Dates: start: 20170104
  24. LEVETIRACETAM. [Concomitant]
     Active Substance: LEVETIRACETAM
     Dosage: UNKNOWN
     Route: 065
     Dates: start: 20170104, end: 20170108
  25. MELATONIN [Concomitant]
     Active Substance: MELATONIN
     Dosage: UNKNOWN
     Route: 065
     Dates: start: 20170108
  26. MENSA [Concomitant]
     Dosage: UNKNOWN
     Route: 065
     Dates: start: 20170109, end: 20170111
  27. GRANISETRON [Concomitant]
     Active Substance: GRANISETRON
     Dosage: UNKNOWN
     Route: 065
     Dates: start: 20170110
  28. METHOTREXATE. [Concomitant]
     Active Substance: METHOTREXATE
     Dosage: UNKNOWN
     Route: 065
     Dates: start: 20170112, end: 20170113
  29. MORPHINE [Concomitant]
     Active Substance: MORPHINE
     Dosage: UNKNOWN
     Route: 065
     Dates: start: 20170115
  30. MAGNESIUM SULFATE. [Concomitant]
     Active Substance: MAGNESIUM SULFATE
     Dosage: UNKNOWN
     Route: 065
     Dates: start: 20170117
  31. GANCICLOVIR. [Concomitant]
     Active Substance: GANCICLOVIR
     Dosage: UNKNOWN
     Route: 065
     Dates: start: 20170104, end: 20170109
  32. CYCLOPHOSPHAMIDE. [Concomitant]
     Active Substance: CYCLOPHOSPHAMIDE
     Dosage: UNKNOWN
     Route: 065
     Dates: start: 20170109, end: 20170110
  33. TACROLIMUS. [Concomitant]
     Active Substance: TACROLIMUS
     Dosage: 0.0136 MG
     Route: 065
     Dates: start: 20170111
  34. URSODIOL. [Concomitant]
     Active Substance: URSODIOL
     Dosage: UNKNOWN DOSE
     Route: 065
     Dates: start: 20170104
  35. CHLORHEXIDINE [Concomitant]
     Active Substance: CHLORHEXIDINE
     Dosage: UNKNOWN
     Route: 065
     Dates: start: 20170104

REACTIONS (1)
  - Venoocclusive disease [Unknown]

NARRATIVE: CASE EVENT DATE: 20170118
